FAERS Safety Report 15029973 (Version 1)
Quarter: 2018Q2

REPORT INFORMATION
  Report Type: Spontaneous
  Country: DE (occurrence: DE)
  Receive Date: 20180619
  Receipt Date: 20180619
  Transmission Date: 20180711
  Serious: Yes (Hospitalization, Other)
  Sender: FDA-Public Use
  Company Number: DE-ASTRAZENECA-2018SE77371

PATIENT
  Sex: Male

DRUGS (1)
  1. CRESTOR [Suspect]
     Active Substance: ROSUVASTATIN CALCIUM
     Indication: CAROTID ARTERY STENOSIS
     Route: 048
     Dates: start: 201509

REACTIONS (2)
  - Tendon disorder [Unknown]
  - Tendon rupture [Recovered/Resolved with Sequelae]
